FAERS Safety Report 10674760 (Version 1)
Quarter: 2014Q4

REPORT INFORMATION
  Report Type: Spontaneous
  Country: US (occurrence: US)
  Receive Date: 20141224
  Receipt Date: 20141224
  Transmission Date: 20150529
  Serious: Yes (Hospitalization, Other)
  Sender: FDA-Public Use
  Company Number: US-BRISTOL-MYERS SQUIBB COMPANY-BMS-2014-001406

PATIENT
  Age: 68 Year
  Sex: Male
  Weight: 91 kg

DRUGS (8)
  1. PEPCID                             /00305201/ [Concomitant]
  2. LIPITOR [Concomitant]
     Active Substance: ATORVASTATIN CALCIUM
  3. COUMADIN [Suspect]
     Active Substance: WARFARIN SODIUM
     Indication: ATRIAL FIBRILLATION
     Route: 065
  4. AMBIEN [Concomitant]
     Active Substance: ZOLPIDEM TARTRATE
  5. ARANESP [Concomitant]
     Active Substance: DARBEPOETIN ALFA
  6. FLECAINIDE [Concomitant]
     Active Substance: FLECAINIDE
  7. MIDODRINE [Concomitant]
     Active Substance: MIDODRINE
  8. PHOSLO [Concomitant]
     Active Substance: CALCIUM ACETATE

REACTIONS (4)
  - Pulmonary embolism [Unknown]
  - Deep vein thrombosis [Unknown]
  - International normalised ratio fluctuation [Unknown]
  - Sepsis [Unknown]
